FAERS Safety Report 16729060 (Version 1)
Quarter: 2019Q3

REPORT INFORMATION
  Report Type: Spontaneous
  Country: GB (occurrence: GB)
  Receive Date: 20190822
  Receipt Date: 20190822
  Transmission Date: 20191005
  Serious: Yes (Death, Other)
  Sender: FDA-Public Use
  Company Number: PHHY2019GB194878

PATIENT

DRUGS (2)
  1. OXALIPLATIN. [Suspect]
     Active Substance: OXALIPLATIN
     Indication: FOETAL EXPOSURE DURING PREGNANCY
     Dosage: MATERNAL DOSE 150 MG, UNK (85MG/M2)
     Route: 064
     Dates: start: 20190528, end: 20190709
  2. FLOUROURACIL [Suspect]
     Active Substance: FLUOROURACIL
     Indication: FOETAL EXPOSURE DURING PREGNANCY
     Dosage: MATERNAL DOSE 700MG (400MG/M2) BOLUS AND 4450MG (2400MG/M2) INFUSION OVER 48 HOURS
     Route: 064
     Dates: start: 20190528, end: 20190711

REACTIONS (2)
  - Foetal exposure during pregnancy [Unknown]
  - Stillbirth [Fatal]

NARRATIVE: CASE EVENT DATE: 20190722
